FAERS Safety Report 20127720 (Version 3)
Quarter: 2024Q1

REPORT INFORMATION
  Report Type: Report from Study
  Country: CO (occurrence: CO)
  Receive Date: 20211129
  Receipt Date: 20240209
  Transmission Date: 20240409
  Serious: Yes (Other)
  Sender: FDA-Public Use
  Company Number: CO-002147023-NVSC2021CO266128

PATIENT

DRUGS (4)
  1. RUXOLITINIB [Suspect]
     Active Substance: RUXOLITINIB
     Indication: Polycythaemia vera
     Dosage: 10 MG, QD
     Route: 048
  2. RUXOLITINIB [Suspect]
     Active Substance: RUXOLITINIB
     Indication: Myelofibrosis
     Dosage: 15 MG, Q12H
     Route: 048
     Dates: start: 20161117
  3. RUXOLITINIB [Suspect]
     Active Substance: RUXOLITINIB
     Dosage: 5 MG, Q12H
     Route: 048
     Dates: start: 20161117, end: 20240201
  4. RUXOLITINIB [Suspect]
     Active Substance: RUXOLITINIB
     Dosage: 15 MG, Q12H
     Route: 065
     Dates: start: 20240201

REACTIONS (7)
  - Deafness [Unknown]
  - Blood test abnormal [Unknown]
  - Weight abnormal [Unknown]
  - General physical health deterioration [Unknown]
  - Platelet count increased [Unknown]
  - Inappropriate schedule of product administration [Unknown]
  - Anxiety [Unknown]
